FAERS Safety Report 23191705 (Version 1)
Quarter: 2023Q4

REPORT INFORMATION
  Report Type: Spontaneous
  Country: US (occurrence: None)
  Receive Date: 20231115
  Receipt Date: 20231115
  Transmission Date: 20240110
  Serious: No
  Sender: FDA-Public Use
  Company Number: None

PATIENT
  Age: 14 Year
  Sex: Male
  Weight: 48.1 kg

DRUGS (2)
  1. NUCALA [Suspect]
     Active Substance: MEPOLIZUMAB
     Indication: Asthma
     Dosage: FREQUENCY : MONTHLY;?
     Route: 058
     Dates: start: 20230417
  2. Nucala 100mg Autoinjector [Concomitant]
     Dates: start: 20230418

REACTIONS (1)
  - Insomnia [None]

NARRATIVE: CASE EVENT DATE: 20231114
